FAERS Safety Report 16896782 (Version 1)
Quarter: 2019Q4

REPORT INFORMATION
  Report Type: Spontaneous
  Country: US (occurrence: US)
  Receive Date: 20191008
  Receipt Date: 20191008
  Transmission Date: 20200122
  Serious: Yes (Other)
  Sender: FDA-Public Use
  Company Number: US-BAXTER-2019BAX019345

PATIENT
  Age: 7 Year
  Sex: Female

DRUGS (7)
  1. VANCOMYCIN INJECTION, USP [Suspect]
     Active Substance: VANCOMYCIN
     Route: 042
  2. VANCOMYCIN INJECTION, USP [Suspect]
     Active Substance: VANCOMYCIN
     Indication: ANTIBIOTIC THERAPY
     Route: 042
  3. VANCOMYCIN INJECTION, USP [Suspect]
     Active Substance: VANCOMYCIN
     Indication: EVIDENCE BASED TREATMENT
     Route: 042
  4. CEFTRIAXONE. [Concomitant]
     Active Substance: CEFTRIAXONE
     Indication: ANTIBIOTIC THERAPY
  5. KETOROLAC TROMETHAMINE INJECTION USP [Suspect]
     Active Substance: KETOROLAC TROMETHAMINE
     Indication: PAIN MANAGEMENT
     Route: 065
  6. IBUPROFEN. [Suspect]
     Active Substance: IBUPROFEN
     Indication: PAIN MANAGEMENT
     Route: 065
  7. CEFTRIAXONE. [Concomitant]
     Active Substance: CEFTRIAXONE
     Indication: EVIDENCE BASED TREATMENT
     Route: 042

REACTIONS (1)
  - Nephropathy toxic [Recovered/Resolved]
